FAERS Safety Report 6327285-9 (Version None)
Quarter: 2009Q3

REPORT INFORMATION
  Report Type: 
  Country: None (occurrence: None)
  Receive Date: 20090825
  Receipt Date: 20090814
  Transmission Date: 20100115
  Serious: Yes (Hospitalization, Disabling, Other)
  Sender: FDA-Public Use
  Company Number: US-MERCK-0810USA05276

PATIENT
  Age: 67 Year
  Sex: Female
  Weight: 73 kg

DRUGS (2)
  1. FOSAMAX [Suspect]
     Indication: OSTEOPOROSIS PROPHYLAXIS
     Route: 048
     Dates: start: 20010101, end: 20070101
  2. FOSAMAX [Suspect]
     Indication: OSTEOPOROSIS
     Route: 048
     Dates: start: 20010101, end: 20070101

REACTIONS (19)
  - ADVERSE DRUG REACTION [None]
  - ANAEMIA [None]
  - ANGIOPATHY [None]
  - CARDIAC DISORDER [None]
  - COUGH [None]
  - HEART RATE INCREASED [None]
  - INFECTION [None]
  - INTRACRANIAL ANEURYSM [None]
  - JAW DISORDER [None]
  - MYOCARDIAL INFARCTION [None]
  - ORAL DISORDER [None]
  - OSTEITIS [None]
  - OSTEONECROSIS [None]
  - RESORPTION BONE INCREASED [None]
  - TOOTH ABSCESS [None]
  - TOOTH DISORDER [None]
  - VAGINAL DYSPLASIA [None]
  - VULVAR DYSPLASIA [None]
  - VULVOVAGINAL PRURITUS [None]
